FAERS Safety Report 17690235 (Version 2)
Quarter: 2020Q3

REPORT INFORMATION
  Report Type: Spontaneous
  Country: US (occurrence: US)
  Receive Date: 20200421
  Receipt Date: 20200731
  Transmission Date: 20201102
  Serious: No
  Sender: FDA-Public Use
  Company Number: US-PARATEK PHARMACEUTICALS, INC.-2020PTK00039

PATIENT
  Age: 60 Year
  Sex: Male

DRUGS (4)
  1. NUZYRA [Suspect]
     Active Substance: OMADACYCLINE
     Indication: MYCOBACTERIAL INFECTION
     Dosage: 300 MG, 1X/DAY
     Route: 048
     Dates: start: 20200309, end: 2020
  2. NUZYRA [Suspect]
     Active Substance: OMADACYCLINE
     Indication: CYSTIC FIBROSIS
     Dosage: 150 MG, 1X/DAY
     Route: 048
     Dates: start: 20200307, end: 20200308
  3. NUZYRA [Suspect]
     Active Substance: OMADACYCLINE
     Indication: PSEUDOMONAS INFECTION
     Dosage: 300 MG, 1X/DAY
     Route: 048
     Dates: start: 2020, end: 202005
  4. NUZYRA [Suspect]
     Active Substance: OMADACYCLINE
     Indication: BURKHOLDERIA MALLEI INFECTION

REACTIONS (6)
  - Migraine [Unknown]
  - Abdominal distension [Unknown]
  - Off label use [Recovered/Resolved]
  - Accidental underdose [Recovered/Resolved]
  - Erythema [Unknown]
  - Rash [Unknown]

NARRATIVE: CASE EVENT DATE: 2020
